FAERS Safety Report 19895906 (Version 1)
Quarter: 2021Q3

REPORT INFORMATION
  Report Type: Spontaneous
  Country: GB (occurrence: GB)
  Receive Date: 20210929
  Receipt Date: 20210929
  Transmission Date: 20211014
  Serious: Yes (Hospitalization)
  Sender: FDA-Public Use
  Company Number: GB-VERTEX PHARMACEUTICALS-2021-014840

PATIENT
  Sex: Female

DRUGS (12)
  1. BISOPROLOL [Concomitant]
     Active Substance: BISOPROLOL
  2. FLUCLOXACILLIN [Concomitant]
     Active Substance: FLUCLOXACILLIN
  3. KAFTRIO [Suspect]
     Active Substance: ELEXACAFTOR\IVACAFTOR\TEZACAFTOR
     Indication: CYSTIC FIBROSIS
     Dosage: 75 MG IVA/ 50 MG TEZA/ 100 MG ELEXA, DAILY
     Route: 048
     Dates: start: 202005
  4. CREON [Concomitant]
     Active Substance: PANCRELIPASE AMYLASE\PANCRELIPASE LIPASE\PANCRELIPASE PROTEASE
     Dosage: 2500
  5. ASPRIN [Concomitant]
     Active Substance: ASPIRIN
  6. TICAGRELOR. [Concomitant]
     Active Substance: TICAGRELOR
  7. PERINDOPRIL [Concomitant]
     Active Substance: PERINDOPRIL
  8. SYMBICORT [Concomitant]
     Active Substance: BUDESONIDE\FORMOTEROL FUMARATE DIHYDRATE
  9. NOVA [PARACETAMOL] [Concomitant]
  10. AZITHROMYCIN ANHYDROUS. [Concomitant]
     Active Substance: AZITHROMYCIN ANHYDROUS
  11. BRICANYL [Concomitant]
     Active Substance: TERBUTALINE SULFATE
  12. ATORVASTATIN [Concomitant]
     Active Substance: ATORVASTATIN

REACTIONS (5)
  - Coronary artery stenosis [Unknown]
  - Chest pain [Unknown]
  - Illness [Unknown]
  - Electrocardiogram abnormal [Unknown]
  - Troponin increased [Unknown]
